FAERS Safety Report 19575487 (Version 1)
Quarter: 2021Q3

REPORT INFORMATION
  Report Type: Spontaneous
  Country: CA (occurrence: CA)
  Receive Date: 20210719
  Receipt Date: 20210719
  Transmission Date: 20211014
  Serious: Yes (Hospitalization, Other)
  Sender: FDA-Public Use
  Company Number: NVSC2021CA153809

PATIENT
  Age: 27 Year
  Sex: Female

DRUGS (31)
  1. SANDOSTATIN [Suspect]
     Active Substance: OCTREOTIDE ACETATE
     Indication: ACROMEGALY
     Dosage: 30 MG, QD (3 EVERY 1 DAYS)
     Route: 058
  2. PASIREOTIDE. [Suspect]
     Active Substance: PASIREOTIDE
     Dosage: 60 MG, QMO (1 EVERY 1 MONTHS)
     Route: 030
  3. VITAMIN D [Concomitant]
     Active Substance: VITAMIN D NOS
     Indication: PRODUCT USED FOR UNKNOWN INDICATION
     Route: 065
  4. SANDOSTATIN LAR DEPOT [Suspect]
     Active Substance: OCTREOTIDE ACETATE
     Dosage: 30 MG, Q4W (1 EVERY 4 WEEKS)
     Route: 030
  5. INSULIN [Concomitant]
     Active Substance: INSULIN NOS
     Indication: PRODUCT USED FOR UNKNOWN INDICATION
     Route: 065
  6. JANUVIA [Concomitant]
     Active Substance: SITAGLIPTIN PHOSPHATE
     Indication: PRODUCT USED FOR UNKNOWN INDICATION
     Route: 065
  7. MIRVALA 21 [Concomitant]
     Indication: PRODUCT USED FOR UNKNOWN INDICATION
     Dosage: 21 ORAL CONTRACEPTIVE
     Route: 048
  8. SOMAVERT [Concomitant]
     Active Substance: PEGVISOMANT
     Indication: PRODUCT USED FOR UNKNOWN INDICATION
     Dosage: POWDER FOR SOLUTION SUBCUTANEOUS
     Route: 065
  9. SANDOSTATIN LAR DEPOT [Suspect]
     Active Substance: OCTREOTIDE ACETATE
     Dosage: 30 MG, Q4W (1 EVERY 4 WEEKS)
     Route: 030
  10. SANDOSTATIN LAR DEPOT [Suspect]
     Active Substance: OCTREOTIDE ACETATE
     Dosage: 20 MG, Q4W (1 EVERY 4 WEEKS)
     Route: 030
  11. SANDOSTATIN LAR DEPOT [Suspect]
     Active Substance: OCTREOTIDE ACETATE
     Dosage: UNK
     Route: 065
  12. PASIREOTIDE. [Suspect]
     Active Substance: PASIREOTIDE
     Indication: ACROMEGALY
     Dosage: 40 MG, QMO (1 EVERY 1 MONTHS)
     Route: 030
  13. PASIREOTIDE. [Suspect]
     Active Substance: PASIREOTIDE
     Dosage: 60 MG, QMO (1 EVERY 1 MONTHS)
     Route: 030
  14. SYNTHROID [Concomitant]
     Active Substance: LEVOTHYROXINE SODIUM
     Indication: PRODUCT USED FOR UNKNOWN INDICATION
     Route: 065
  15. SANDOSTATIN [Suspect]
     Active Substance: OCTREOTIDE ACETATE
  16. FLUCONAZOLE. [Concomitant]
     Active Substance: FLUCONAZOLE
     Indication: PRODUCT USED FOR UNKNOWN INDICATION
     Route: 065
  17. NOVORAPID [Concomitant]
     Active Substance: INSULIN ASPART
     Indication: PRODUCT USED FOR UNKNOWN INDICATION
     Dosage: SOLUTION FOR SUBCUTANEOUS
     Route: 065
  18. SANDOSTATIN LAR DEPOT [Suspect]
     Active Substance: OCTREOTIDE ACETATE
     Indication: ACROMEGALY
     Dosage: 30 MG, Q4W (1 EVERY 4 WEEKS)
     Route: 030
  19. SANDOSTATIN LAR DEPOT [Suspect]
     Active Substance: OCTREOTIDE ACETATE
     Dosage: 30 MG
     Route: 030
  20. CABERGOLINE. [Suspect]
     Active Substance: CABERGOLINE
     Indication: ACROMEGALY
     Route: 065
  21. PASIREOTIDE. [Suspect]
     Active Substance: PASIREOTIDE
     Dosage: 40 MG, QMO (1 EVERY 1 MONTHS)
     Route: 030
  22. DOSTINEX [Concomitant]
     Active Substance: CABERGOLINE
     Indication: PRODUCT USED FOR UNKNOWN INDICATION
     Route: 065
  23. METFORMIN [Concomitant]
     Active Substance: METFORMIN HYDROCHLORIDE
     Indication: PRODUCT USED FOR UNKNOWN INDICATION
     Route: 065
  24. PASIREOTIDE. [Suspect]
     Active Substance: PASIREOTIDE
     Dosage: 60 MG, QMO (1 EVERY 1 MONTHS)
     Route: 030
  25. SANDOSTATIN [Suspect]
     Active Substance: OCTREOTIDE ACETATE
  26. SANDOSTATIN LAR DEPOT [Suspect]
     Active Substance: OCTREOTIDE ACETATE
     Dosage: 30 MG, Q4W (1 EVERY 4 WEEKS)
     Route: 030
  27. PASIREOTIDE. [Suspect]
     Active Substance: PASIREOTIDE
     Dosage: 30 MG, QMO (1 EVERY 1 MONTHS)
     Route: 030
  28. PASIREOTIDE. [Suspect]
     Active Substance: PASIREOTIDE
     Dosage: 40 MG, QMO (1 EVERY 1 MONTHS)
     Route: 030
  29. DIABETA [Concomitant]
     Active Substance: GLYBURIDE
     Indication: PRODUCT USED FOR UNKNOWN INDICATION
     Route: 065
  30. INVOKANA [Concomitant]
     Active Substance: CANAGLIFLOZIN
     Indication: PRODUCT USED FOR UNKNOWN INDICATION
     Route: 065
  31. PMS?CYCLOBENZAPRINE [Concomitant]
     Indication: PRODUCT USED FOR UNKNOWN INDICATION
     Route: 065

REACTIONS (21)
  - Heart rate decreased [Unknown]
  - Heart rate increased [Unknown]
  - Laryngitis bacterial [Unknown]
  - Back pain [Unknown]
  - Infectious mononucleosis [Unknown]
  - Insulin-like growth factor increased [Unknown]
  - Sinusitis [Unknown]
  - Headache [Unknown]
  - Drug ineffective [Unknown]
  - Blood pressure increased [Unknown]
  - Ligament sprain [Unknown]
  - Movement disorder [Unknown]
  - Facial pain [Unknown]
  - Drug resistance [Unknown]
  - Blood pressure diastolic decreased [Unknown]
  - Groin abscess [Unknown]
  - Abdominal pain [Unknown]
  - Blood cholesterol abnormal [Unknown]
  - Body temperature decreased [Unknown]
  - Cortisol decreased [Unknown]
  - Nasal congestion [Unknown]
